FAERS Safety Report 18463087 (Version 2)
Quarter: 2022Q4

REPORT INFORMATION
  Report Type: Spontaneous
  Country: GB (occurrence: GB)
  Receive Date: 20201104
  Receipt Date: 20221127
  Transmission Date: 20230113
  Serious: Yes (Hospitalization, Other)
  Sender: FDA-Public Use
  Company Number: GB-EMA-DD-20201019-ABDUL_J-104352

PATIENT
  Sex: Male

DRUGS (3)
  1. ARIPIPRAZOLE [Suspect]
     Active Substance: ARIPIPRAZOLE
     Indication: Product used for unknown indication
     Dosage: 15 MILLIGRAM DAILY; IN THE MORNING, THERAPY END DATE: ASKU
     Route: 065
     Dates: start: 20201007
  2. ARIPIPRAZOLE [Suspect]
     Active Substance: ARIPIPRAZOLE
     Dosage: 10 MILLIGRAM DAILY; IN THE MORNING, DURATION : 7 DAYS
     Route: 065
     Dates: start: 20200930, end: 20201006
  3. CLOZARIL [Suspect]
     Active Substance: CLOZAPINE
     Indication: Schizophrenia
     Dosage: 300 MILLIGRAM DAILY; 300 MILLIGRAMS, QD (AT NIGHT), DURATION : 218 DAYS
     Route: 048
     Dates: start: 20200224, end: 20200928

REACTIONS (1)
  - Schizophrenia [Unknown]
